FAERS Safety Report 6263841-4 (Version None)
Quarter: 2009Q3

REPORT INFORMATION
  Report Type: 
  Country: None (occurrence: None)
  Receive Date: 20090701
  Receipt Date: 20090226
  Transmission Date: 20100115
  Serious: Yes (Hospitalization, Other)
  Sender: FDA-Public Use
  Company Number: 186269USA

PATIENT

DRUGS (3)
  1. CISPLATIN [Suspect]
  2. DOCETAXEL [Suspect]
     Dosage: CYCLE 4
  3. TRASTUZUMAB [Suspect]

REACTIONS (4)
  - COLITIS [None]
  - GASTROINTESTINAL DISORDER [None]
  - NEUTROPENIA [None]
  - PYREXIA [None]
